FAERS Safety Report 26107538 (Version 2)
Quarter: 2025Q4

REPORT INFORMATION
  Report Type: Report from Study
  Country: CN (occurrence: CN)
  Receive Date: 20251201
  Receipt Date: 20251215
  Transmission Date: 20260117
  Serious: Yes (Other)
  Sender: PFIZER
  Company Number: CN-PFIZER INC-PV202500129607

PATIENT
  Age: 16 Year
  Sex: Male

DRUGS (1)
  1. XYNTHA [Suspect]
     Active Substance: MOROCTOCOG ALFA
     Indication: Factor VIII deficiency
     Dosage: 2000 IU EACH TIME, ONCE EVERY 12 HOURS
     Route: 040

REACTIONS (9)
  - Extravasation blood [Unknown]
  - Gingival bleeding [Unknown]
  - Ecchymosis [Unknown]
  - Erythema [Unknown]
  - Joint swelling [Unknown]
  - Arthralgia [Unknown]
  - Haemarthrosis [Unknown]
  - Joint injury [Unknown]
  - Skin abrasion [Unknown]

NARRATIVE: CASE EVENT DATE: 20251001
